FAERS Safety Report 25213703 (Version 1)
Quarter: 2025Q2

REPORT INFORMATION
  Report Type: Spontaneous
  Country: FR (occurrence: FR)
  Receive Date: 20250418
  Receipt Date: 20250418
  Transmission Date: 20250716
  Serious: Yes (Hospitalization)
  Sender: PFIZER
  Company Number: None

PATIENT
  Age: 47 Year
  Sex: Male
  Weight: 73 kg

DRUGS (11)
  1. CYTARABINE [Suspect]
     Active Substance: CYTARABINE
     Indication: Acute myelomonocytic leukaemia
     Dosage: 400 MG, 1X/DAY
     Route: 042
     Dates: start: 20250228, end: 20250306
  2. CERUBIDINE [Suspect]
     Active Substance: DAUNORUBICIN HYDROCHLORIDE
     Indication: Acute myelomonocytic leukaemia
     Dosage: 120 MG, 1X/DAY
     Route: 042
     Dates: start: 20250228, end: 20250302
  3. PIPERACILLIN SODIUM\TAZOBACTAM SODIUM [Concomitant]
     Active Substance: PIPERACILLIN SODIUM\TAZOBACTAM SODIUM
  4. LINEZOLID [Concomitant]
     Active Substance: LINEZOLID
  5. ACETAMINOPHEN [Concomitant]
     Active Substance: ACETAMINOPHEN
  6. ONDANSETRON [Concomitant]
     Active Substance: ONDANSETRON
  7. ALIZAPRIDE [Concomitant]
     Active Substance: ALIZAPRIDE
  8. APREPITANT [Concomitant]
     Active Substance: APREPITANT
  9. DEXAMETHASONE [Concomitant]
     Active Substance: DEXAMETHASONE
  10. NICOPATCH [Concomitant]
     Active Substance: NICOTINE
  11. POSACONAZOLE [Concomitant]
     Active Substance: POSACONAZOLE

REACTIONS (2)
  - Neutropenic colitis [Recovering/Resolving]
  - Mucosal inflammation [Recovering/Resolving]

NARRATIVE: CASE EVENT DATE: 20250306
